FAERS Safety Report 8517814-9 (Version None)
Quarter: 2012Q3

REPORT INFORMATION
  Report Type: 
  Country: None (occurrence: None)
  Receive Date: 20120712
  Receipt Date: 20120712
  Transmission Date: 20120928
  Serious: No
  Sender: FDA-Public Use
  Company Number: None

PATIENT
  Sex: Male
  Weight: 64 kg

DRUGS (2)
  1. RANITIDINE [Suspect]
     Indication: PREMEDICATION
     Dosage: 50MG ONCE IV BOLUS
     Route: 040
     Dates: start: 20120531, end: 20120531
  2. RANITIDINE [Suspect]
     Indication: CHEMOTHERAPY
     Dosage: 50MG ONCE IV BOLUS
     Route: 040
     Dates: start: 20120531, end: 20120531

REACTIONS (3)
  - COLD SWEAT [None]
  - TACHYCARDIA [None]
  - OCULAR HYPERAEMIA [None]
